FAERS Safety Report 10343205 (Version 1)
Quarter: 2014Q3

REPORT INFORMATION
  Report Type: Spontaneous
  Country: US (occurrence: US)
  Receive Date: 20140725
  Receipt Date: 20140725
  Transmission Date: 20150326
  Serious: Yes (Hospitalization, Other)
  Sender: FDA-Public Use
  Company Number: US-TARO-2014TAR00167

PATIENT
  Sex: Male

DRUGS (1)
  1. CARBAMAZEPINE TABLETS USP 200 MG [Suspect]
     Active Substance: CARBAMAZEPINE
     Indication: COMPLEX PARTIAL SEIZURES

REACTIONS (13)
  - Facial bones fracture [Unknown]
  - Road traffic accident [Unknown]
  - Investigation [Unknown]
  - Clavicle fracture [Unknown]
  - Joint injury [Unknown]
  - Convulsion [None]
  - Spinal compression fracture [Unknown]
  - Laceration [Unknown]
  - Drug ineffective [Unknown]
  - Foot fracture [Unknown]
  - Lower limb fracture [Unknown]
  - Rib fracture [Unknown]
  - Ligament sprain [Unknown]
